FAERS Safety Report 7375968-4 (Version None)
Quarter: 2011Q1

REPORT INFORMATION
  Report Type: 
  Country: None (occurrence: None)
  Receive Date: 20110315
  Receipt Date: 20110307
  Transmission Date: 20110831
  Serious: Yes (Other)
  Sender: FDA-Public Use
  Company Number: 2008-178051-NL

PATIENT
  Age: 24 Year
  Sex: Female
  Weight: 58.1 kg

DRUGS (12)
  1. NUVARING [Suspect]
     Indication: CONTRACEPTION
     Dosage: ;VAG
     Route: 067
     Dates: start: 20060401, end: 20080101
  2. METHIMAZOLE [Concomitant]
  3. BENADRYL [Concomitant]
  4. PROPOXYPHENE NAPSYLATE W/ ACETAMINOPHEN [Concomitant]
  5. CEPHALEXIN [Concomitant]
  6. SSKI [Concomitant]
  7. NADOLOL [Concomitant]
  8. SYNTHROID [Concomitant]
  9. METOPROLOL TARTRATE [Concomitant]
  10. ACETAMINOPHEN [Concomitant]
  11. PROVENTIL-HFA [Concomitant]
  12. LEVOTHYROXINE [Concomitant]

REACTIONS (34)
  - UPPER RESPIRATORY TRACT INFECTION [None]
  - DYSPHAGIA [None]
  - FATIGUE [None]
  - TREMOR [None]
  - OVARIAN CYST [None]
  - ASTHMA EXERCISE INDUCED [None]
  - PHARYNGITIS [None]
  - HYPERTHYROIDISM [None]
  - BASEDOW'S DISEASE [None]
  - BLINDNESS [None]
  - APHASIA [None]
  - PAIN IN EXTREMITY [None]
  - MUSCLE SPASMS [None]
  - SINUS TACHYCARDIA [None]
  - AREFLEXIA [None]
  - BALANCE DISORDER [None]
  - APHTHOUS STOMATITIS [None]
  - SPEECH DISORDER [None]
  - TRANSIENT ISCHAEMIC ATTACK [None]
  - CEREBROVASCULAR ACCIDENT [None]
  - AMENORRHOEA [None]
  - NAUSEA [None]
  - MENSTRUATION IRREGULAR [None]
  - VISUAL FIELD DEFECT [None]
  - FEELING JITTERY [None]
  - HEADACHE [None]
  - PARAESTHESIA [None]
  - MIGRAINE [None]
  - POST PROCEDURAL HYPOTHYROIDISM [None]
  - WEIGHT DECREASED [None]
  - ACUTE SINUSITIS [None]
  - TONGUE DISORDER [None]
  - ALOPECIA [None]
  - COAGULOPATHY [None]
